FAERS Safety Report 9639948 (Version 1)
Quarter: 2013Q4

REPORT INFORMATION
  Report Type: Spontaneous
  Country: CA (occurrence: CA)
  Receive Date: 20131023
  Receipt Date: 20131023
  Transmission Date: 20140711
  Serious: Yes (Death)
  Sender: FDA-Public Use
  Company Number: CA-VERTEX PHARMACEUTICALS INC-2013-010540

PATIENT
  Sex: 0

DRUGS (2)
  1. PEGASYS [Suspect]
     Route: 058
  2. INCIVEK [Suspect]
     Indication: HEPATITIS C

REACTIONS (1)
  - Death [Fatal]
